FAERS Safety Report 15001514 (Version 1)
Quarter: 2018Q2

REPORT INFORMATION
  Report Type: Spontaneous
  Country: US (occurrence: US)
  Receive Date: 20180612
  Receipt Date: 20180612
  Transmission Date: 20180711
  Serious: No
  Sender: FDA-Public Use
  Company Number: US-APTEVO BIOTHERAPEUTICS LLC-17WR00030SP

PATIENT
  Age: 4 Year
  Sex: Female
  Weight: 31 kg

DRUGS (1)
  1. WINRHO SDF [Suspect]
     Active Substance: HUMAN RHO(D) IMMUNE GLOBULIN
     Indication: IMMUNE THROMBOCYTOPENIC PURPURA
     Dosage: 2000 IU, SINGLE
     Route: 042
     Dates: start: 20170712, end: 20170712

REACTIONS (1)
  - Haemolysis [Recovered/Resolved]

NARRATIVE: CASE EVENT DATE: 20170713
